FAERS Safety Report 4773359-3 (Version None)
Quarter: 2005Q3

REPORT INFORMATION
  Report Type: 
  Country: None (occurrence: None)
  Receive Date: 20050916
  Receipt Date: 20050906
  Transmission Date: 20060218
  Serious: Yes (Hospitalization)
  Sender: FDA-Public Use
  Company Number: 184588

PATIENT
  Age: 75 Year
  Sex: Female
  Weight: 68.0396 kg

DRUGS (21)
  1. AVONEX [Suspect]
     Indication: MULTIPLE SCLEROSIS
     Dosage: 30 UG; QW; IM
     Route: 030
     Dates: start: 20010801, end: 20030901
  2. AVONEX [Suspect]
     Indication: MULTIPLE SCLEROSIS
     Dosage: 30 UG; QW; IM
     Route: 030
     Dates: start: 20030901
  3. BUSPIRONE HCL [Concomitant]
  4. SENIOR VITAMINS [Concomitant]
  5. SPECTRAVITE [Concomitant]
  6. JOINT CARE (GLUCOSAMINE-CHONDROITIN) [Concomitant]
  7. VITAMIN E [Concomitant]
  8. FOLIC ACID [Concomitant]
  9. SYNTHROID [Concomitant]
  10. GINKGOLD [Concomitant]
  11. ASCORBIC ACID [Concomitant]
  12. BETACAROTENE [Concomitant]
  13. ASPIRIN [Concomitant]
  14. ARICEPT [Concomitant]
  15. ZOLOFT [Concomitant]
  16. REMINYL [Concomitant]
  17. PEMOLINE [Concomitant]
  18. FLUOXETINE [Concomitant]
  19. DITROPAN [Concomitant]
  20. AMBIEN [Concomitant]
  21. ANTI DIARRHEAL AGENTS [Concomitant]

REACTIONS (19)
  - AORTIC VALVE INCOMPETENCE [None]
  - CARDIAC FAILURE CONGESTIVE [None]
  - CARDIAC SEPTAL DEFECT [None]
  - CARDIOMEGALY [None]
  - CHRONIC OBSTRUCTIVE PULMONARY DISEASE [None]
  - CONGESTIVE CARDIOMYOPATHY [None]
  - DILATATION VENTRICULAR [None]
  - HILAR LYMPHADENOPATHY [None]
  - LUNG INFILTRATION [None]
  - LYMPHADENOPATHY MEDIASTINAL [None]
  - MITRAL VALVE INCOMPETENCE [None]
  - PLEURAL EFFUSION [None]
  - PNEUMONIA [None]
  - PULMONARY HYPERTENSION [None]
  - PULMONARY MASS [None]
  - SCAR [None]
  - TRICUSPID VALVE INCOMPETENCE [None]
  - VENTRICULAR DYSFUNCTION [None]
  - WEIGHT INCREASED [None]
